FAERS Safety Report 9518351 (Version 1)
Quarter: 2013Q3

REPORT INFORMATION
  Report Type: Spontaneous
  Country: DE (occurrence: None)
  Receive Date: 20130910
  Receipt Date: 20130910
  Transmission Date: 20140515
  Serious: Yes (Life-Threatening, Hospitalization)
  Sender: FDA-Public Use
  Company Number: GER/GER/13/0034438

PATIENT
  Age: 70 Year
  Sex: Male
  Weight: 72 kg

DRUGS (4)
  1. TERBINAFINE (TERBINAFINE) [Suspect]
     Indication: ONYCHOMYCOSIS
     Dosage: 250 MG, 1 IN 1 D, ORAL
     Route: 048
     Dates: start: 20130506, end: 20130617
  2. DIOVAN (VALSARTAN) [Concomitant]
  3. CONCOR (BISOPROLOL FUMARATE) [Concomitant]
  4. XALATAN (LATANOPROST) [Concomitant]

REACTIONS (5)
  - Agranulocytosis [None]
  - Dizziness [None]
  - Headache [None]
  - Monocytosis [None]
  - Gingivitis [None]
